FAERS Safety Report 9464934 (Version 2)
Quarter: 2013Q3

REPORT INFORMATION
  Report Type: Report from Study
  Country: BE (occurrence: BE)
  Receive Date: 20130819
  Receipt Date: 20130819
  Transmission Date: 20140515
  Serious: Yes (Other)
  Sender: FDA-Public Use
  Company Number: PHHY2013BE069735

PATIENT
  Age: 44 Year
  Sex: Female

DRUGS (1)
  1. SOM230 [Suspect]
     Indication: ACROMEGALY
     Route: 030
     Dates: start: 20081030

REACTIONS (1)
  - Diabetes mellitus [Recovered/Resolved]
